FAERS Safety Report 4806905-1 (Version None)
Quarter: 2005Q4

REPORT INFORMATION
  Report Type: 
  Country: None (occurrence: None)
  Receive Date: 20051019
  Receipt Date: 20051011
  Transmission Date: 20060501
  Serious: Yes (Other)
  Sender: FDA-Public Use
  Company Number: 200513483GDS

PATIENT

DRUGS (6)
  1. NIFEDIPINE [Suspect]
     Indication: HYPERTENSION
     Dosage: 80 MG, TOTAL DAILY, ORAL
     Route: 048
  2. RIFAMPICIN [Suspect]
     Indication: PLEURISY
  3. AMLODIPINE [Concomitant]
  4. ATENOLOL [Concomitant]
  5. URAPIDIL [Concomitant]
  6. CANDESARTAN [Concomitant]

REACTIONS (6)
  - BLOOD PRESSURE INADEQUATELY CONTROLLED [None]
  - DIALYSIS [None]
  - FATIGUE [None]
  - OEDEMA [None]
  - RENAL FAILURE [None]
  - TUBERCULOUS PLEURISY [None]
